FAERS Safety Report 10415754 (Version 1)
Quarter: 2014Q3

REPORT INFORMATION
  Report Type: Spontaneous
  Country: US (occurrence: US)
  Receive Date: 20140828
  Receipt Date: 20140828
  Transmission Date: 20150326
  Serious: Yes (Other)
  Sender: FDA-Public Use
  Company Number: 2014SP002660

PATIENT
  Age: 47 Year
  Sex: Female

DRUGS (16)
  1. MYSOLINE [Concomitant]
     Active Substance: PRIMIDONE
  2. ACETAZOLAMIDE. [Concomitant]
     Active Substance: ACETAZOLAMIDE
  3. PREGABALIN. [Concomitant]
     Active Substance: PREGABALIN
  4. ATIVAN [Concomitant]
     Active Substance: LORAZEPAM
  5. OXCARBAZEPINE. [Concomitant]
     Active Substance: OXCARBAZEPINE
  6. APTIOM [Suspect]
     Active Substance: ESLICARBAZEPINE ACETATE
     Indication: COMPLEX PARTIAL SEIZURES
     Route: 048
     Dates: start: 20140718
  7. ABILIFY [Concomitant]
     Active Substance: ARIPIPRAZOLE
  8. VIMPAT [Concomitant]
     Active Substance: LACOSAMIDE
  9. ZONEGRAN [Concomitant]
     Active Substance: ZONISAMIDE
  10. TEGRETOL [Concomitant]
     Active Substance: CARBAMAZEPINE
  11. TOPAMAX [Concomitant]
     Active Substance: TOPIRAMATE
  12. CARBAMAZEPINE. [Concomitant]
     Active Substance: CARBAMAZEPINE
  13. DIAZEPAM. [Concomitant]
     Active Substance: DIAZEPAM
  14. EFFEXOR [Concomitant]
     Active Substance: VENLAFAXINE HYDROCHLORIDE
  15. PHENYTOIN. [Concomitant]
     Active Substance: PHENYTOIN
  16. POTIGA [Concomitant]
     Active Substance: EZOGABINE

REACTIONS (4)
  - Throat irritation [Unknown]
  - Pruritus generalised [Unknown]
  - Hypersensitivity [Unknown]
  - Eye disorder [Unknown]
